FAERS Safety Report 11104260 (Version 1)
Quarter: 2015Q2

REPORT INFORMATION
  Report Type: Spontaneous
  Country: NL (occurrence: NL)
  Receive Date: 20150511
  Receipt Date: 20150511
  Transmission Date: 20150821
  Serious: Yes (Other)
  Sender: FDA-Public Use
  Company Number: NL-TEVA-561437ISR

PATIENT
  Age: 64 Year
  Sex: Female
  Weight: 67 kg

DRUGS (3)
  1. LOSARTAN TABLET FO  50MG [Concomitant]
     Active Substance: LOSARTAN
     Dosage: 50 MILLIGRAM DAILY; ONCE DAILY ONE PIECE
     Route: 048
     Dates: start: 20060626
  2. TAMOXIFEN TABLET 20MG [Suspect]
     Active Substance: TAMOXIFEN
     Indication: BREAST CANCER
     Dosage: 20 MILLIGRAM DAILY; ONCE DAILY ONE PIECE, EXTRA INFO: ONCE DAILY 20 MG
     Route: 048
     Dates: start: 20130702
  3. DIVISUN TABLET 800IE [Concomitant]
     Dosage: 800 IU (INTERNATIONAL UNIT) DAILY; ONCE DAILY ONE PIECE
     Route: 048
     Dates: start: 20131224

REACTIONS (2)
  - Vitreous detachment [Not Recovered/Not Resolved]
  - Vitreous floaters [Not Recovered/Not Resolved]

NARRATIVE: CASE EVENT DATE: 20141001
